FAERS Safety Report 6886379-X (Version None)
Quarter: 2010Q3

REPORT INFORMATION
  Report Type: 
  Country: None (occurrence: None)
  Receive Date: 20100729
  Receipt Date: 20090414
  Transmission Date: 20110219
  Serious: No
  Sender: FDA-Public Use
  Company Number: US-PFIZER INC-2009198535

PATIENT
  Sex: Female

DRUGS (2)
  1. CELEBREX [Suspect]
  2. IBUPROFEN [Suspect]

REACTIONS (2)
  - ADVERSE REACTION [None]
  - BLOOD PRESSURE INCREASED [None]
